FAERS Safety Report 6885159-9 (Version None)
Quarter: 2010Q3

REPORT INFORMATION
  Report Type: 
  Country: None (occurrence: None)
  Receive Date: 20100729
  Receipt Date: 20071211
  Transmission Date: 20110219
  Serious: Yes (Other)
  Sender: FDA-Public Use
  Company Number: US-PFIZER INC-2007104158

PATIENT
  Sex: Female
  Weight: 63.636 kg

DRUGS (2)
  1. CELEBREX [Suspect]
     Indication: SJOGREN'S SYNDROME
     Dates: end: 20071210
  2. ESTRACE [Concomitant]

REACTIONS (3)
  - ABDOMINAL DISCOMFORT [None]
  - GASTROOESOPHAGEAL REFLUX DISEASE [None]
  - OESOPHAGITIS [None]
